FAERS Safety Report 8231171-7 (Version None)
Quarter: 2012Q1

REPORT INFORMATION
  Report Type: 
  Country: None (occurrence: None)
  Receive Date: 20120323
  Receipt Date: 20120323
  Transmission Date: 20120608
  Serious: No
  Sender: FDA-Public Use
  Company Number: None

PATIENT
  Sex: Female

DRUGS (7)
  1. THALIDOMIDE [Concomitant]
  2. REV/DEX/BORT/PREDNISONE/THALIDOM [Concomitant]
     Dosage: NOT PROVIDED
  3. REVLIMID [Concomitant]
  4. DEXAMETHASONE [Concomitant]
  5. PREDNISONE TAB [Concomitant]
  6. VELCADE [Suspect]
     Indication: MULTIPLE MYELOMA
     Dosage: NOT PROVIDED
  7. BORTEZOMIB [Concomitant]

REACTIONS (3)
  - SOMNOLENCE [None]
  - BACK PAIN [None]
  - FATIGUE [None]
